FAERS Safety Report 9738576 (Version 1)
Quarter: 2013Q4

REPORT INFORMATION
  Report Type: Spontaneous
  Country: US (occurrence: US)
  Receive Date: 20131209
  Receipt Date: 20131209
  Transmission Date: 20140711
  Serious: Yes (Hospitalization)
  Sender: FDA-Public Use
  Company Number: US-009507513-1312USA002838

PATIENT
  Age: 80 Year
  Sex: Male

DRUGS (1)
  1. MIRTAZAPINE [Suspect]
     Dosage: 15 MG, HS
     Route: 048
     Dates: start: 2004

REACTIONS (1)
  - Thrombocytopenia [Not Recovered/Not Resolved]
